FAERS Safety Report 11986582 (Version 1)
Quarter: 2016Q1

REPORT INFORMATION
  Report Type: Spontaneous
  Country: US (occurrence: None)
  Receive Date: 20160201
  Receipt Date: 20160201
  Transmission Date: 20160526
  Serious: Yes (Hospitalization)
  Sender: FDA-Public Use
  Company Number: None

PATIENT
  Age: 25 Year
  Sex: Female
  Weight: 108 kg

DRUGS (20)
  1. METHYLPHENIDATE (RITALIN) [Concomitant]
  2. TOPAMAX [Concomitant]
     Active Substance: TOPIRAMATE
  3. B COMPLEX VITAMINS (B COMPLEX 50) [Concomitant]
  4. METHYLPHENIDATE ER (CONCERTA) [Concomitant]
  5. ALBUTEROL 108 (90 BASE) MCG/ACT INHALER [Concomitant]
  6. EPINEPHRINE (EPIPEN) [Concomitant]
  7. ZYPREXA [Concomitant]
     Active Substance: OLANZAPINE
  8. OLOPATADINE HCL (PATADAY) 0.2% OPHTHALMIC SOLUTION [Concomitant]
  9. ACETAMINOPHEN-CODEINE (TYLENOL NO.3) [Concomitant]
  10. CLONAZEPAM (KLONOPIN) [Concomitant]
  11. NECON 1/50 [Suspect]
     Active Substance: MESTRANOL\NORETHINDRONE
     Indication: MENORRHAGIA
     Dosage: 1 TABLET QD ORAL?
     Route: 048
  12. COUMADIN [Concomitant]
     Active Substance: WARFARIN SODIUM
  13. PANTOPRAZOLE (PROTONIX) [Concomitant]
  14. LORATADINE (CLARITIN) [Concomitant]
  15. ALBUTEROL (VENTOLIN) [Concomitant]
  16. DEPO-PROVERA [Suspect]
     Active Substance: MEDROXYPROGESTERONE ACETATE
     Indication: MENORRHAGIA
     Dosage: 1 ONCE INTRAVENOUS
     Route: 042
  17. LIORESAL [Concomitant]
     Active Substance: BACLOFEN
  18. SYMBICORT [Concomitant]
     Active Substance: BUDESONIDE\FORMOTEROL FUMARATE DIHYDRATE
  19. SINGULAIR [Concomitant]
     Active Substance: MONTELUKAST SODIUM
  20. FLAXSEED, LINSEED (GROUND FLAX SEEDS) [Concomitant]

REACTIONS (5)
  - Dyspnoea [None]
  - Haemoptysis [None]
  - Pain in extremity [None]
  - Pulmonary embolism [None]
  - Deep vein thrombosis [None]

NARRATIVE: CASE EVENT DATE: 20160120
